FAERS Safety Report 24588383 (Version 2)
Quarter: 2025Q3

REPORT INFORMATION
  Report Type: Report from Study
  Country: US (occurrence: US)
  Receive Date: 20241107
  Receipt Date: 20250730
  Transmission Date: 20251020
  Serious: No
  Sender: SANDOZ
  Company Number: US-SANDOZ-SDZ2024US092941

PATIENT
  Sex: Female

DRUGS (2)
  1. OMNITROPE [Suspect]
     Active Substance: SOMATROPIN
     Indication: Short stature
     Dosage: 1.9 MG, QD (10 MG/1.5 ML SOLUTION FOR INJECTION IN CARTRIDGE)
     Route: 058
  2. OMNITROPE [Suspect]
     Active Substance: SOMATROPIN
     Indication: Short stature
     Dosage: 1.9 MG, QD (10 MG/1.5 ML SOLUTION FOR INJECTION IN CARTRIDGE)
     Route: 058

REACTIONS (2)
  - Injection site haemorrhage [Unknown]
  - Device issue [Unknown]
